FAERS Safety Report 5728552-X (Version None)
Quarter: 2008Q2

REPORT INFORMATION
  Report Type: 
  Country: None (occurrence: None)
  Receive Date: 20080430
  Receipt Date: 20080424
  Transmission Date: 20081010
  Serious: Yes (Hospitalization)
  Sender: FDA-Public Use
  Company Number: 2008SP007730

PATIENT
  Age: 56 Year
  Sex: Female
  Weight: 64 kg

DRUGS (11)
  1. TEMODAL [Suspect]
     Indication: ANAPLASTIC ASTROCYTOMA
     Dosage: 75 MG/M2; QD; PO ; 200 MG/M2; QD; PO ; 200 MG/M2; QD; PO
     Route: 048
     Dates: start: 20061005, end: 20061115
  2. TEMODAL [Suspect]
     Indication: ANAPLASTIC ASTROCYTOMA
     Dosage: 75 MG/M2; QD; PO ; 200 MG/M2; QD; PO ; 200 MG/M2; QD; PO
     Route: 048
     Dates: start: 20061204, end: 20061208
  3. TEMODAL [Suspect]
     Indication: ANAPLASTIC ASTROCYTOMA
     Dosage: 75 MG/M2; QD; PO ; 200 MG/M2; QD; PO ; 200 MG/M2; QD; PO
     Route: 048
     Dates: start: 20070102, end: 20070105
  4. DEPAKENE [Concomitant]
  5. ZOFRAN ZYDIS [Concomitant]
  6. PRIMPERAN TAB [Concomitant]
  7. NAVOBAN [Concomitant]
  8. NAUZELIN [Concomitant]
  9. PHENOBAL [Concomitant]
  10. MAGNESIUM OXIDE [Concomitant]
  11. EXCEGRAN [Concomitant]

REACTIONS (4)
  - ACTIVITIES OF DAILY LIVING IMPAIRED [None]
  - HYDROCEPHALUS [None]
  - NAUSEA [None]
  - NEOPLASM PROGRESSION [None]
